FAERS Safety Report 5316212-9 (Version None)
Quarter: 2007Q2

REPORT INFORMATION
  Report Type: 
  Country: None (occurrence: None)
  Receive Date: 20070503
  Receipt Date: 20070425
  Transmission Date: 20071010
  Serious: Yes (Other)
  Sender: FDA-Public Use
  Company Number: MY-ROXANE LABORATORIES, INC-2007-BP-05655RO

PATIENT
  Age: 17 Year
  Sex: Male

DRUGS (3)
  1. METHOTREXATE [Suspect]
     Indication: LEUKAEMIC INFILTRATION BRAIN
     Route: 037
     Dates: start: 20050201
  2. DEXAMETHASONE 0.5MG TAB [Suspect]
     Indication: LEUKAEMIC INFILTRATION BRAIN
     Route: 037
     Dates: start: 20050216
  3. ARA-C [Suspect]
     Indication: LEUKAEMIC INFILTRATION BRAIN
     Route: 037
     Dates: start: 20050216

REACTIONS (6)
  - HYPERTENSION [None]
  - HYPOAESTHESIA [None]
  - MYELOPATHY [None]
  - PARAESTHESIA [None]
  - PARAPLEGIA [None]
  - TACHYCARDIA [None]
